FAERS Safety Report 12647152 (Version 1)
Quarter: 2016Q3

REPORT INFORMATION
  Report Type: Spontaneous
  Country: US (occurrence: None)
  Receive Date: 20160811
  Receipt Date: 20160811
  Transmission Date: 20161109
  Serious: Yes (Disabling)
  Sender: FDA-Public Use
  Company Number: None

PATIENT
  Age: 58 Year
  Sex: Female
  Weight: 69.4 kg

DRUGS (13)
  1. CALCIUM WITH D [Concomitant]
     Active Substance: CALCIUM\VITAMIN D
  2. ATORVASTATIN [Concomitant]
     Active Substance: ATORVASTATIN
  3. TAMSULOSIN [Concomitant]
     Active Substance: TAMSULOSIN
  4. MOTRIN [Concomitant]
     Active Substance: IBUPROFEN
  5. RESTASIS [Concomitant]
     Active Substance: CYCLOSPORINE
  6. SUMATRIPTAN. [Concomitant]
     Active Substance: SUMATRIPTAN
  7. MVI [Concomitant]
     Active Substance: VITAMINS
  8. B STRESS [Concomitant]
  9. TYLENOL [Concomitant]
     Active Substance: ACETAMINOPHEN
  10. MAGNESIUM [Concomitant]
     Active Substance: MAGNESIUM
  11. RALOXIFENE. [Concomitant]
     Active Substance: RALOXIFENE
  12. BOTOX [Suspect]
     Active Substance: ONABOTULINUMTOXINA
     Indication: MIGRAINE
     Dosage: INJECTED EVERY 3 MONTHS
     Dates: start: 2011, end: 20151022
  13. ZINC [Concomitant]
     Active Substance: ZINC\ZINC CHLORIDE

REACTIONS (11)
  - Electroencephalogram abnormal [None]
  - Feeling abnormal [None]
  - Disorganised speech [None]
  - Headache [None]
  - Disorientation [None]
  - Impaired driving ability [None]
  - Memory impairment [None]
  - Aphasia [None]
  - Swelling face [None]
  - Reading disorder [None]
  - Impulsive behaviour [None]

NARRATIVE: CASE EVENT DATE: 20151022
